FAERS Safety Report 6679529-1 (Version None)
Quarter: 2010Q2

REPORT INFORMATION
  Report Type: 
  Country: None (occurrence: None)
  Receive Date: 20100413
  Receipt Date: 20100331
  Transmission Date: 20101027
  Serious: Yes (Other)
  Sender: FDA-Public Use
  Company Number: PHHY2010JP20549

PATIENT
  Age: 79 Year
  Sex: Female

DRUGS (6)
  1. RASILEZ [Suspect]
     Indication: HYPERTENSION
     Dosage: 150 MG, ONCE EVERY MORNING
     Route: 048
     Dates: start: 20100107, end: 20100326
  2. RASILEZ [Suspect]
     Dosage: 300 MG, DAILY
     Route: 048
     Dates: start: 20100327, end: 20100327
  3. RASILEZ [Suspect]
     Dosage: 150 MG, DAILY
     Route: 048
     Dates: start: 20100328
  4. RENIVACE [Suspect]
     Dosage: 5 MG, DAILY
     Route: 048
  5. CANDESARTAN CILEXETIL [Suspect]
     Dosage: 12 MG, DAILY
     Route: 048
  6. TENORMIN [Suspect]
     Dosage: 25 MG, UNK
     Route: 048

REACTIONS (3)
  - DRUG EFFECT DECREASED [None]
  - HALLUCINATION, AUDITORY [None]
  - HALLUCINATION, VISUAL [None]
